FAERS Safety Report 7490902-4 (Version None)
Quarter: 2011Q2

REPORT INFORMATION
  Report Type: 
  Country: None (occurrence: None)
  Receive Date: 20110517
  Receipt Date: 20110517
  Transmission Date: 20111010
  Serious: Yes (Disabling, Other)
  Sender: FDA-Public Use
  Company Number: None

PATIENT
  Age: 83 Year
  Sex: Female
  Weight: 56.6996 kg

DRUGS (2)
  1. PREDNISOLONE [Suspect]
     Indication: TRANSPLANT FAILURE
     Dosage: ONE DROP BID OPHTHALMIC
     Route: 047
     Dates: start: 20010808, end: 20011024
  2. PREDNISOLONE [Suspect]
     Indication: CORNEAL TRANSPLANT
     Dosage: ONE DROP BID OPHTHALMIC
     Route: 047
     Dates: start: 20010808, end: 20011024

REACTIONS (3)
  - ACTIVITIES OF DAILY LIVING IMPAIRED [None]
  - VISUAL ACUITY REDUCED [None]
  - PRODUCT SUBSTITUTION ISSUE [None]
